FAERS Safety Report 13243494 (Version 1)
Quarter: 2017Q1

REPORT INFORMATION
  Report Type: Spontaneous
  Country: US (occurrence: US)
  Receive Date: 20170216
  Receipt Date: 20170216
  Transmission Date: 20170428
  Serious: No
  Sender: FDA-Public Use
  Company Number: US-MALLINCKRODT-T201603000

PATIENT

DRUGS (4)
  1. INOMAX [Suspect]
     Active Substance: NITRIC OXIDE
     Dosage: REDUCED IN INCREMENTS OF 1 PPM EVERY HOUR
  2. INOMAX [Suspect]
     Active Substance: NITRIC OXIDE
     Indication: PULMONARY HYPERTENSION
     Dosage: 20 PPM
  3. INOMAX [Suspect]
     Active Substance: NITRIC OXIDE
     Indication: POSTOPERATIVE CARE
     Dosage: DECREASED IN INCREMENTS OF 5 PPM EVERY 4 HOURS UNTIL ACHIEVE DOSE OF 5 PPM
  4. VIAGRA JET [Concomitant]

REACTIONS (2)
  - Rebound effect [Unknown]
  - Off label use [Unknown]
